FAERS Safety Report 21997720 (Version 1)
Quarter: 2023Q1

REPORT INFORMATION
  Report Type: Report from Study
  Country: CA (occurrence: CA)
  Receive Date: 20230216
  Receipt Date: 20230216
  Transmission Date: 20230417
  Serious: Yes (Other)
  Sender: FDA-Public Use
  Company Number: CA-CELLTRION INC.-2023CA003449

PATIENT

DRUGS (1)
  1. TRUXIMA [Suspect]
     Active Substance: RITUXIMAB-ABBS
     Indication: Warm autoimmune haemolytic anaemia
     Dosage: 622.5 MG IV WEEKLY X 4 WEEKS/ 6 VIALS X 500 MG AND 8 VIAL X 100 MG
     Route: 042

REACTIONS (3)
  - Warm autoimmune haemolytic anaemia [Unknown]
  - Condition aggravated [Unknown]
  - Off label use [Unknown]
